FAERS Safety Report 12413430 (Version 1)
Quarter: 2016Q2

REPORT INFORMATION
  Report Type: Other
  Country: IT (occurrence: IT)
  Receive Date: 20160527
  Receipt Date: 20160527
  Transmission Date: 20160815
  Serious: Yes (Other)
  Sender: FDA-Public Use
  Company Number: IT-MYLANLABS-2016M1021995

PATIENT

DRUGS (5)
  1. SEQUACOR [Suspect]
     Active Substance: BISOPROLOL
     Indication: CARDIAC FAILURE
     Dosage: 1 DF, QD
  2. METFORMIN [Suspect]
     Active Substance: METFORMIN HYDROCHLORIDE
     Indication: DIABETES MELLITUS
     Dosage: 2 DF, QD
  3. COAPROVEL [Suspect]
     Active Substance: HYDROCHLOROTHIAZIDE\IRBESARTAN
     Indication: HYPERTENSION
     Dosage: 1 DF, QD
  4. ZANEDIP [Suspect]
     Active Substance: LERCANIDIPINE HYDROCHLORIDE
     Indication: HYPERTENSION
     Dosage: 1 DF DAILY
  5. CARDIOASPIRIN [Suspect]
     Active Substance: ASPIRIN
     Indication: THROMBOSIS PROPHYLAXIS
     Dosage: 1 DF, QD

REACTIONS (1)
  - Epistaxis [Recovered/Resolved]

NARRATIVE: CASE EVENT DATE: 20160430
